FAERS Safety Report 7151199-8 (Version None)
Quarter: 2010Q4

REPORT INFORMATION
  Report Type: 
  Country: None (occurrence: None)
  Receive Date: 20101210
  Receipt Date: 20101130
  Transmission Date: 20110411
  Serious: Yes (Other)
  Sender: FDA-Public Use
  Company Number: AU-JNJFOC-20100805745

PATIENT
  Sex: Male

DRUGS (3)
  1. STELARA [Suspect]
     Indication: PSORIASIS
     Route: 058
  2. STELARA [Suspect]
     Route: 058
  3. ANTIBIOTICS NOS [Concomitant]

REACTIONS (3)
  - CELLULITIS [None]
  - OSTEOMYELITIS [None]
  - PAIN IN EXTREMITY [None]
